FAERS Safety Report 8511182-4 (Version None)
Quarter: 2012Q2

REPORT INFORMATION
  Report Type: 
  Country: None (occurrence: None)
  Receive Date: 20120629
  Receipt Date: 20120620
  Transmission Date: 20120825
  Serious: Yes (Other)
  Sender: FDA-Public Use
  Company Number: 2012SP029726

PATIENT
  Age: 82 Year
  Sex: Male

DRUGS (13)
  1. DEXAMETHASONE [Suspect]
     Indication: CHRONIC LYMPHOCYTIC LEUKAEMIA
     Dosage: 20 MG
     Dates: start: 20110602
  2. CIPROFLOXACIN /00697202/ [Concomitant]
  3. OMEPRAZOLE [Concomitant]
  4. BENDAMUSTINE HYDROCHLORIDE [Suspect]
     Indication: CHRONIC LYMPHOCYTIC LEUKAEMIA
     Dosage: 70 MG/M2 ; 70 MG/M2 ; 70 MG/M2;QD
     Dates: start: 20110711
  5. BENDAMUSTINE HYDROCHLORIDE [Suspect]
     Indication: CHRONIC LYMPHOCYTIC LEUKAEMIA
     Dosage: 70 MG/M2 ; 70 MG/M2 ; 70 MG/M2;QD
     Dates: start: 20110809
  6. BENDAMUSTINE HYDROCHLORIDE [Suspect]
     Indication: CHRONIC LYMPHOCYTIC LEUKAEMIA
     Dosage: 70 MG/M2 ; 70 MG/M2 ; 70 MG/M2;QD
     Dates: start: 20110613, end: 20110614
  7. ASPIRIN [Concomitant]
  8. RAMIPRIL [Concomitant]
  9. ALLOPURINOL [Concomitant]
  10. FLUCONAZOLE [Concomitant]
  11. ACICLOVIR /00587302/ [Concomitant]
  12. ENOXAPARIN SODIUM [Concomitant]
  13. SIMAVASTATIN [Concomitant]

REACTIONS (7)
  - INFECTION [None]
  - FLUSHING [None]
  - CHILLS [None]
  - DISCOMFORT [None]
  - MALAISE [None]
  - FEELING HOT [None]
  - BODY TEMPERATURE INCREASED [None]
